FAERS Safety Report 5638090-0 (Version None)
Quarter: 2008Q1

REPORT INFORMATION
  Report Type: 
  Country: None (occurrence: None)
  Receive Date: 20080226
  Receipt Date: 20080225
  Transmission Date: 20080703
  Serious: Yes (Other)
  Sender: FDA-Public Use
  Company Number: US-JNJFOC-20080205113

PATIENT
  Sex: Male

DRUGS (5)
  1. INVEGA [Suspect]
     Indication: SCHIZOPHRENIA
     Route: 048
  2. DEPAKOTE [Concomitant]
     Indication: AFFECTIVE DISORDER
  3. TRAZODONE HCL [Concomitant]
     Indication: SLEEP DISORDER THERAPY
  4. BENZOTROPINE [Concomitant]
     Indication: PROPHYLAXIS
  5. CLOZARIL [Concomitant]
     Indication: SCHIZOPHRENIA

REACTIONS (1)
  - NEUTROPENIA [None]
